FAERS Safety Report 6144147-0 (Version None)
Quarter: 2009Q2

REPORT INFORMATION
  Report Type: 
  Country: None (occurrence: None)
  Receive Date: 20090406
  Receipt Date: 20090330
  Transmission Date: 20091009
  Serious: Yes (Death)
  Sender: FDA-Public Use
  Company Number: US-BIOGENIDEC-2009BI009951

PATIENT
  Age: 61 Year
  Sex: Female

DRUGS (3)
  1. AVONEX [Suspect]
     Indication: MULTIPLE SCLEROSIS
     Route: 030
     Dates: start: 20030801
  2. AVONEX [Suspect]
     Route: 030
     Dates: start: 20010501, end: 20020901
  3. AVONEX [Suspect]
     Route: 030
     Dates: start: 20030201

REACTIONS (1)
  - DEATH [None]
